FAERS Safety Report 6163311-8 (Version None)
Quarter: 2009Q2

REPORT INFORMATION
  Report Type: 
  Country: None (occurrence: None)
  Receive Date: 20090420
  Receipt Date: 20090406
  Transmission Date: 20091009
  Serious: Yes (Death, Other)
  Sender: FDA-Public Use
  Company Number: 2009AL002217

PATIENT
  Age: 29 Year
  Sex: Female

DRUGS (4)
  1. MIRTAZAPINE [Suspect]
     Indication: DEPRESSION
     Dosage: 45 MG; QD; PO
     Route: 048
  2. SALBUTAMOL [Concomitant]
  3. OMEPRAZOLE [Concomitant]
  4. METOCLOPRAMIDE [Concomitant]

REACTIONS (1)
  - DIABETIC KETOACIDOSIS [None]
